APPROVED DRUG PRODUCT: FLUDROCORTISONE ACETATE
Active Ingredient: FLUDROCORTISONE ACETATE
Strength: 0.1MG
Dosage Form/Route: TABLET;ORAL
Application: A040425 | Product #001
Applicant: BARR LABORATORIES INC
Approved: Jan 21, 2003 | RLD: No | RS: No | Type: DISCN